FAERS Safety Report 4676587-0 (Version None)
Quarter: 2005Q2

REPORT INFORMATION
  Report Type: 
  Country: None (occurrence: None)
  Receive Date: 20050525
  Receipt Date: 20050513
  Transmission Date: 20051028
  Serious: Yes (Other)
  Sender: FDA-Public Use
  Company Number: 2002107060CH

PATIENT
  Age: 56 Year
  Sex: Female

DRUGS (6)
  1. MYCOBUTIN [Suspect]
     Indication: MYCOBACTERIUM AVIUM COMPLEX INFECTION
     Dosage: 300 MG (150 MG, BID)
     Route: 048
  2. ETHAMBUTOL (ETHAMBUTOL) [Suspect]
     Indication: MYCOBACTERIUM AVIUM COMPLEX INFECTION
     Dosage: 800 MG (400 MG, BID)
  3. CLARITHROMYCIN [Suspect]
     Indication: MYCOBACTERIUM AVIUM COMPLEX INFECTION
     Dosage: 1000 MG (500 MG, BID)
  4. CORTICOSTEROID NOS (CORTICOSTEROID NOS) [Concomitant]
  5. BETA BLOCKING AGENTS (BETA BLOCKING AGENTS) [Concomitant]
  6. ANTIINFLAMMATORY / ANTIRHEUMATIC PRODUCTS (ANTIINFLAMAMTORY / ANTIRHEU [Concomitant]

REACTIONS (5)
  - HYPOPYON [None]
  - IRIDOCYCLITIS [None]
  - MACULAR OEDEMA [None]
  - PHOTOPHOBIA [None]
  - VISUAL ACUITY REDUCED [None]
